FAERS Safety Report 20193713 (Version 2)
Quarter: 2022Q3

REPORT INFORMATION
  Report Type: Spontaneous
  Country: CA (occurrence: CA)
  Receive Date: 20211216
  Receipt Date: 20220930
  Transmission Date: 20221027
  Serious: Yes (Other)
  Sender: FDA-Public Use
  Company Number: CA-SAMSUNG BIOEPIS-SB-2021-28772

PATIENT
  Age: 54 Year
  Sex: Male

DRUGS (1)
  1. INFLIXIMAB [Suspect]
     Active Substance: INFLIXIMAB
     Indication: Crohn^s disease
     Route: 042

REACTIONS (6)
  - Limb injury [Unknown]
  - Road traffic accident [Unknown]
  - Illness [Unknown]
  - Drug level below therapeutic [Unknown]
  - Intentional product use issue [Unknown]
  - Off label use [Unknown]
